FAERS Safety Report 6763654-0 (Version None)
Quarter: 2010Q2

REPORT INFORMATION
  Report Type: 
  Country: None (occurrence: None)
  Receive Date: 20100608
  Receipt Date: 20100524
  Transmission Date: 20101027
  Serious: No
  Sender: FDA-Public Use
  Company Number: 2009S1005624

PATIENT
  Sex: Male

DRUGS (1)
  1. PHOSPHOSODA FLAVOR NOT SPECIFIED [Suspect]
     Indication: BIOPSY PROSTATE
     Dosage: 90 ML; TOTAL; PO
     Route: 048
     Dates: start: 20080721, end: 20080721

REACTIONS (1)
  - INJURY [None]
